FAERS Safety Report 4886340-0 (Version None)
Quarter: 2006Q1

REPORT INFORMATION
  Report Type: 
  Country: None (occurrence: None)
  Receive Date: 20060118
  Receipt Date: 20060105
  Transmission Date: 20060701
  Serious: Yes (Other)
  Sender: FDA-Public Use
  Company Number: 2006005554

PATIENT
  Sex: Female

DRUGS (6)
  1. BEXTRA [Suspect]
     Indication: ARTHRITIS
  2. ARTHROTEC [Suspect]
     Indication: ARTHRITIS
  3. LORTAB [Concomitant]
  4. ROBAXIN [Concomitant]
  5. FOSAMAX [Concomitant]
  6. ASPIRIN [Concomitant]

REACTIONS (2)
  - CONDITION AGGRAVATED [None]
  - DISABILITY [None]
